FAERS Safety Report 6679199-2 (Version None)
Quarter: 2010Q2

REPORT INFORMATION
  Report Type: 
  Country: None (occurrence: None)
  Receive Date: 20100413
  Receipt Date: 20100402
  Transmission Date: 20101027
  Serious: Yes (Death, Life-Threatening, Hospitalization)
  Sender: FDA-Public Use
  Company Number: JP-JNJFOC-20091008998

PATIENT
  Sex: Female
  Weight: 53 kg

DRUGS (19)
  1. DOXORUBICIN HCL [Suspect]
     Indication: OVARIAN CANCER RECURRENT
     Dosage: CYCLE 3
     Route: 042
  2. DOXORUBICIN HCL [Suspect]
     Dosage: CYCLE 1
     Route: 042
  3. DOXORUBICIN HCL [Suspect]
     Dosage: CYCLE 2
     Route: 042
  4. LAXOBERON [Concomitant]
     Route: 048
  5. NEUROVITAN [Concomitant]
     Indication: PROPHYLAXIS
     Route: 048
  6. DAI-KENCHU-TO [Concomitant]
     Route: 048
  7. LENDORMIN D [Concomitant]
     Route: 048
  8. LOXONIN [Concomitant]
     Route: 048
  9. POVIDONE IODINE [Concomitant]
     Indication: PROPHYLAXIS
     Route: 049
  10. DEXALTIN [Concomitant]
     Indication: PROPHYLAXIS
     Route: 061
  11. MAGMITT [Concomitant]
     Route: 048
  12. PROCHLORPERAZINE [Concomitant]
     Route: 048
  13. AZUNOL [Concomitant]
     Indication: STOMATITIS
     Route: 049
  14. LECICARBON [Concomitant]
     Route: 054
  15. KINDAVATE [Concomitant]
     Indication: PALMAR-PLANTAR ERYTHRODYSAESTHESIA SYNDROME
     Route: 061
  16. HEPARIN [Concomitant]
     Indication: PALMAR-PLANTAR ERYTHRODYSAESTHESIA SYNDROME
     Route: 061
  17. GASCON [Concomitant]
     Route: 048
  18. CEREKINON [Concomitant]
     Route: 048
  19. DEPAS [Concomitant]
     Route: 048

REACTIONS (4)
  - INTERSTITIAL LUNG DISEASE [None]
  - NAUSEA [None]
  - PNEUMONIA ASPIRATION [None]
  - VOMITING [None]
